FAERS Safety Report 16967350 (Version 1)
Quarter: 2019Q4

REPORT INFORMATION
  Report Type: Spontaneous
  Country: US (occurrence: US)
  Receive Date: 20191028
  Receipt Date: 20191028
  Transmission Date: 20200122
  Serious: Yes (Hospitalization)
  Sender: FDA-Public Use
  Company Number: US-OTSUKA-2019_036198

PATIENT
  Sex: Female

DRUGS (2)
  1. SAMSCA [Suspect]
     Active Substance: TOLVAPTAN
     Indication: HYPONATRAEMIA
     Dosage: 15 MG, QD
     Route: 048
  2. SAMSCA [Suspect]
     Active Substance: TOLVAPTAN
     Indication: BLOOD OSMOLARITY DECREASED

REACTIONS (1)
  - Blood sodium decreased [Unknown]
